FAERS Safety Report 7172276-1 (Version None)
Quarter: 2010Q4

REPORT INFORMATION
  Report Type: 
  Country: None (occurrence: None)
  Receive Date: 20101217
  Receipt Date: 20100203
  Transmission Date: 20110411
  Serious: No
  Sender: FDA-Public Use
  Company Number: US-AMGEN-KDL390386

PATIENT

DRUGS (5)
  1. ENBREL [Suspect]
     Indication: PRODUCT USED FOR UNKNOWN INDICATION
     Dosage: 50 MG, QWK
     Route: 058
  2. METHOTREXATE [Concomitant]
     Dosage: 2.5 MG, UNK
  3. NAPROXEN [Concomitant]
     Dosage: 250 MG, UNK
  4. FOLIC ACID [Concomitant]
     Dosage: 1 MG, UNK
  5. NORETHINDRONE/ETHINYL ESTRADIOL [Concomitant]
     Dosage: UNK UNK, UNK

REACTIONS (2)
  - OROPHARYNGEAL PAIN [None]
  - PRODUCTIVE COUGH [None]
